FAERS Safety Report 11637945 (Version 2)
Quarter: 2016Q2

REPORT INFORMATION
  Report Type: Spontaneous
  Country: US (occurrence: US)
  Receive Date: 20151016
  Receipt Date: 20160609
  Transmission Date: 20160815
  Serious: Yes (Other)
  Sender: FDA-Public Use
  Company Number: US-AMGEN-USASP2015107210

PATIENT
  Age: 72 Year
  Sex: Female
  Weight: 84 kg

DRUGS (6)
  1. PREDNISONE. [Suspect]
     Active Substance: PREDNISONE
     Indication: URTICARIA
     Dosage: UNK
     Route: 065
  2. AFINITOR [Concomitant]
     Active Substance: EVEROLIMUS
     Indication: BONE CANCER
     Dosage: 5 MG, QD
     Route: 048
     Dates: start: 20150914, end: 20150928
  3. LETROZOLE. [Concomitant]
     Active Substance: LETROZOLE
  4. MANNITOL. [Concomitant]
     Active Substance: MANNITOL
  5. XGEVA [Suspect]
     Active Substance: DENOSUMAB
     Indication: BONE CANCER
     Dosage: 120 MG/1.7 ML
     Route: 042
     Dates: start: 2015
  6. AROMASIN [Concomitant]
     Active Substance: EXEMESTANE
     Indication: PRODUCT USED FOR UNKNOWN INDICATION
     Dosage: 25 MG, QD
     Route: 048
     Dates: start: 20150914, end: 20150928

REACTIONS (13)
  - Urticaria [Recovering/Resolving]
  - Local swelling [Unknown]
  - Incorrect route of drug administration [Unknown]
  - Adverse drug reaction [Unknown]
  - Hypersensitivity [Unknown]
  - Drug effect decreased [Unknown]
  - Metastases to bone [Unknown]
  - Seizure [Recovered/Resolved]
  - Loss of consciousness [Unknown]
  - Pruritus [Recovered/Resolved]
  - Blood glucose increased [Recovering/Resolving]
  - Erythema [Unknown]
  - Influenza [Unknown]

NARRATIVE: CASE EVENT DATE: 20150916
